FAERS Safety Report 23895591 (Version 1)
Quarter: 2024Q2

REPORT INFORMATION
  Report Type: Spontaneous
  Country: US (occurrence: US)
  Receive Date: 20240524
  Receipt Date: 20240524
  Transmission Date: 20240715
  Serious: Yes (Other)
  Sender: FDA-Public Use
  Company Number: US-REGENERON PHARMACEUTICALS, INC.-2024-075879

PATIENT
  Age: 77 Year
  Sex: Male

DRUGS (2)
  1. EYLEA HD [Suspect]
     Active Substance: AFLIBERCEPT
     Indication: Product used for unknown indication
     Dosage: 8 MG, INTO LEFT EYE, 4-6 WEEKS, FORMULATION: HD
     Dates: start: 202312
  2. EYLEA HD [Suspect]
     Active Substance: AFLIBERCEPT
     Dosage: 8 MG, INTO LEFT EYE, EVERY EIGHT WEEKS, FORMULATION: HD
     Dates: end: 202403

REACTIONS (2)
  - Retinal oedema [Unknown]
  - Visual impairment [Unknown]
